FAERS Safety Report 8034084-9 (Version None)
Quarter: 2011Q4

REPORT INFORMATION
  Report Type: 
  Country: None (occurrence: None)
  Receive Date: 20111202
  Receipt Date: 20100608
  Transmission Date: 20120403
  Serious: Yes (Hospitalization)
  Sender: FDA-Public Use
  Company Number: 2010SP031955

PATIENT
  Age: 26 Year
  Sex: Female
  Weight: 83.9154 kg

DRUGS (1)
  1. NUVARING [Suspect]
     Indication: CONTRACEPTION
     Dates: start: 20070701, end: 20080602

REACTIONS (6)
  - PULMONARY INFARCTION [None]
  - NAUSEA [None]
  - RETROPERITONEUM CYST [None]
  - PULMONARY EMBOLISM [None]
  - VOMITING [None]
  - ABDOMINAL PAIN [None]
